FAERS Safety Report 25528464 (Version 1)
Quarter: 2025Q3

REPORT INFORMATION
  Report Type: Spontaneous
  Country: JP (occurrence: JP)
  Receive Date: 20250708
  Receipt Date: 20250708
  Transmission Date: 20251021
  Serious: Yes (Death)
  Sender: Vantive US Healthcare
  Company Number: JP-VANTIVE-2025VAN002759

PATIENT
  Age: 9 Decade
  Sex: Female

DRUGS (1)
  1. REGUNEAL LCA [Suspect]
     Active Substance: CALCIUM CHLORIDE\DEXTROSE MONOHYDRATE\HYDROCHLORIC ACID\MAGNESIUM CHLORIDE\SODIUM BICARBONATE\SODIUM
     Indication: Dialysis
     Route: 033
     Dates: start: 20250425

REACTIONS (1)
  - Marasmus [Fatal]
